FAERS Safety Report 5150417-5 (Version None)
Quarter: 2006Q4

REPORT INFORMATION
  Report Type: 
  Country: None (occurrence: None)
  Receive Date: 20061109
  Receipt Date: 20061109
  Transmission Date: 20070319
  Serious: Yes (Hospitalization)
  Sender: FDA-Public Use
  Company Number: None

PATIENT
  Age: 22 Year
  Sex: Female
  Weight: 54 kg

DRUGS (1)
  1. YASMIN [Suspect]
     Indication: ORAL CONTRACEPTION
     Dosage: ONE TABLET DAILY PO
     Route: 048

REACTIONS (6)
  - CHEST PAIN [None]
  - DYSPNOEA [None]
  - HAEMOPTYSIS [None]
  - LUNG CONSOLIDATION [None]
  - PNEUMONIA [None]
  - PULMONARY EMBOLISM [None]
